FAERS Safety Report 6195016-1 (Version None)
Quarter: 2009Q2

REPORT INFORMATION
  Report Type: 
  Country: None (occurrence: None)
  Receive Date: 20090519
  Receipt Date: 20090511
  Transmission Date: 20091009
  Serious: Yes (Death, Hospitalization)
  Sender: FDA-Public Use
  Company Number: B0556497A

PATIENT
  Sex: Male
  Weight: 49 kg

DRUGS (14)
  1. VALTREX [Suspect]
     Indication: HERPES SIMPLEX
     Dosage: 500MG PER DAY
     Route: 048
     Dates: start: 20090109, end: 20090110
  2. ARASENA-A [Concomitant]
     Route: 061
  3. CLINORIL [Concomitant]
     Dosage: 200MG PER DAY
     Route: 048
  4. MARZULENE-S [Concomitant]
     Dosage: 1.34G PER DAY
     Route: 048
  5. VITAMEDIN [Concomitant]
     Route: 048
  6. VASOLAN [Concomitant]
     Dosage: 120MG PER DAY
     Route: 048
  7. BIO THREE [Concomitant]
     Route: 048
  8. MEXITIL [Concomitant]
     Dosage: 150MG PER DAY
     Route: 048
  9. TANKARU [Concomitant]
     Route: 048
  10. ALFAROL [Concomitant]
     Dosage: 200MG PER DAY
     Route: 048
  11. PREDNISOLONE [Concomitant]
     Dosage: 8MG PER DAY
     Route: 048
  12. TAGAMET [Concomitant]
     Dosage: 200MG PER DAY
     Route: 048
  13. AMOBAN [Concomitant]
     Dosage: 7.5MG PER DAY
     Route: 048
  14. EURODIN [Concomitant]
     Dosage: 2MG PER DAY
     Route: 048

REACTIONS (19)
  - ABSCESS LIMB [None]
  - ALTERED STATE OF CONSCIOUSNESS [None]
  - BLOOD CHOLINESTERASE DECREASED [None]
  - BLOOD CREATININE INCREASED [None]
  - BLOOD PHOSPHORUS INCREASED [None]
  - BLOOD POTASSIUM INCREASED [None]
  - BLOOD UREA INCREASED [None]
  - BLOOD URIC ACID INCREASED [None]
  - DELIRIUM [None]
  - DYSARTHRIA [None]
  - DYSSTASIA [None]
  - ENCEPHALOPATHY [None]
  - GAIT DISTURBANCE [None]
  - HAEMATOCRIT DECREASED [None]
  - HAEMOGLOBIN DECREASED [None]
  - LYMPHOCYTE COUNT DECREASED [None]
  - NEUTROPHIL COUNT INCREASED [None]
  - RED BLOOD CELL COUNT DECREASED [None]
  - WHITE BLOOD CELL COUNT INCREASED [None]
